FAERS Safety Report 6044084-6 (Version None)
Quarter: 2009Q1

REPORT INFORMATION
  Report Type: 
  Country: None (occurrence: None)
  Receive Date: 20090120
  Receipt Date: 20090114
  Transmission Date: 20090719
  Serious: Yes (Hospitalization)
  Sender: FDA-Public Use
  Company Number: B0526810A

PATIENT
  Age: 48 Year
  Sex: Male

DRUGS (14)
  1. SERETIDE [Suspect]
     Indication: ASTHMA
     Dosage: 1PUFF TWICE PER DAY
     Route: 055
  2. VENTOLIN [Suspect]
     Indication: DRUG USE FOR UNKNOWN INDICATION
     Dosage: 100MCG AS REQUIRED
     Route: 055
  3. GABAPENTIN [Suspect]
     Dates: start: 20081101
  4. ACETAMINOPHEN [Suspect]
     Dosage: 1G THREE TIMES PER DAY
  5. TRAMADOL HCL [Suspect]
     Dates: start: 20081101
  6. OMEPRAZOLE [Suspect]
  7. MEBEVERINE [Suspect]
     Indication: IRRITABLE BOWEL SYNDROME
  8. AMITRIPTYLINE [Suspect]
  9. FLUOXETINE [Suspect]
     Dates: start: 20081201
  10. CHLORDIAZEPOXIDE [Concomitant]
     Route: 065
  11. MEBEVERINE [Concomitant]
     Route: 065
  12. OMEPRAZOLE [Concomitant]
     Route: 065
  13. TRAMADOL HCL [Concomitant]
     Route: 065
  14. ACETAMINOPHEN [Concomitant]
     Route: 065

REACTIONS (12)
  - BRONCHITIS [None]
  - CHRONIC OBSTRUCTIVE PULMONARY DISEASE [None]
  - DYSPNOEA [None]
  - IRRITABLE BOWEL SYNDROME [None]
  - LOWER RESPIRATORY TRACT INFECTION [None]
  - MOBILITY DECREASED [None]
  - MOVEMENT DISORDER [None]
  - NERVE COMPRESSION [None]
  - PAIN [None]
  - PHARYNGITIS [None]
  - PROSTATE INFECTION [None]
  - UMBILICAL HERNIA REPAIR [None]
